FAERS Safety Report 8332942-9 (Version None)
Quarter: 2012Q2

REPORT INFORMATION
  Report Type: 
  Country: None (occurrence: None)
  Receive Date: 20120503
  Receipt Date: 20120418
  Transmission Date: 20120825
  Serious: Yes (Other)
  Sender: FDA-Public Use
  Company Number: PHHY2012NO032887

PATIENT
  Sex: Female
  Weight: 54 kg

DRUGS (3)
  1. MAGNESIUM [Concomitant]
     Indication: BLOOD MAGNESIUM DECREASED
     Dosage: 120 MG, BID
     Dates: start: 20071219
  2. NILOTINIB [Suspect]
     Indication: CHRONIC MYELOID LEUKAEMIA
     Dosage: 600 MG, DAILY
     Route: 048
     Dates: start: 20071221
  3. POTASSIUM CHLORIDE [Concomitant]
     Indication: BLOOD POTASSIUM DECREASED
     Dosage: 750 MG, BID
     Route: 048

REACTIONS (3)
  - ABORTION SPONTANEOUS [None]
  - MATERNAL EXPOSURE DURING PREGNANCY [None]
  - VAGINAL HAEMORRHAGE [None]
